FAERS Safety Report 25869628 (Version 3)
Quarter: 2025Q4

REPORT INFORMATION
  Report Type: Report from Study
  Country: GB (occurrence: GB)
  Receive Date: 20251001
  Receipt Date: 20251103
  Transmission Date: 20260118
  Serious: Yes (Life-Threatening, Other)
  Sender: NOVARTIS
  Company Number: GB-002147023-NVSC2025GB152784

PATIENT
  Sex: Male

DRUGS (3)
  1. COSENTYX [Suspect]
     Active Substance: SECUKINUMAB
     Indication: Axial spondyloarthritis
     Dosage: 150 MG, QMO
     Route: 058
     Dates: start: 20220501
  2. COSENTYX [Suspect]
     Active Substance: SECUKINUMAB
     Indication: Psoriatic arthropathy
  3. HERBALS\TURMERIC [Concomitant]
     Active Substance: HERBALS\TURMERIC
     Indication: Product used for unknown indication
     Dosage: UNK
     Route: 065

REACTIONS (11)
  - Ill-defined disorder [Unknown]
  - Castleman^s disease [Unknown]
  - Pneumothorax [Unknown]
  - Renal disorder [Unknown]
  - Colon injury [Unknown]
  - Pain [Unknown]
  - Peripheral swelling [Unknown]
  - Diaphragmatic disorder [Unknown]
  - Product dose omission issue [Unknown]
  - Drug ineffective [Unknown]
  - Product temperature excursion issue [Unknown]
